FAERS Safety Report 12056640 (Version 5)
Quarter: 2016Q2

REPORT INFORMATION
  Report Type: Report from Study
  Country: US (occurrence: US)
  Receive Date: 20160209
  Receipt Date: 20160628
  Transmission Date: 20160815
  Serious: Yes (Hospitalization)
  Sender: FDA-Public Use
  Company Number: US-ACTELION-A-US2016-129946

PATIENT
  Age: 67 Year
  Sex: Male

DRUGS (5)
  1. COUMADIN [Concomitant]
     Active Substance: WARFARIN SODIUM
  2. OPSUMIT [Suspect]
     Active Substance: MACITENTAN
     Indication: PULMONARY ARTERIAL HYPERTENSION
     Dosage: 10 MG, QD
     Route: 048
     Dates: start: 20141017
  3. VELETRI [Suspect]
     Active Substance: EPOPROSTENOL
     Indication: PULMONARY ARTERIAL HYPERTENSION
     Dosage: 22 NG/KG, PER MIN
     Route: 042
     Dates: start: 20131113
  4. RIOCIGUAT [Concomitant]
     Active Substance: RIOCIGUAT
  5. TORSEMIDE. [Concomitant]
     Active Substance: TORSEMIDE

REACTIONS (12)
  - Abdominal distension [Unknown]
  - Decreased appetite [Unknown]
  - Oedema [Unknown]
  - Cough [Unknown]
  - Nasal congestion [Unknown]
  - Hernia hiatus repair [Unknown]
  - Hernia [Unknown]
  - Dyspnoea [Recovering/Resolving]
  - Upper respiratory tract infection [Unknown]
  - Peripheral swelling [Unknown]
  - Weight increased [Unknown]
  - Metabolic surgery [Unknown]

NARRATIVE: CASE EVENT DATE: 201606
